FAERS Safety Report 7889545-X (Version None)
Quarter: 2011Q4

REPORT INFORMATION
  Report Type: 
  Country: None (occurrence: None)
  Receive Date: 20111103
  Receipt Date: 20101102
  Transmission Date: 20120403
  Serious: No
  Sender: FDA-Public Use
  Company Number: US-BRISTOL-MYERS SQUIBB COMPANY-15364367

PATIENT
  Age: 68 Year
  Sex: Female
  Weight: 63 kg

DRUGS (2)
  1. PRILOSEC [Concomitant]
  2. KENALOG-40 [Suspect]
     Indication: KELOID SCAR
     Dates: start: 20090319

REACTIONS (1)
  - INJECTION SITE ATROPHY [None]
